FAERS Safety Report 9367659 (Version 2)
Quarter: 2013Q3

REPORT INFORMATION
  Report Type: Report from Study
  Country: US (occurrence: US)
  Receive Date: 20130625
  Receipt Date: 20130711
  Transmission Date: 20140515
  Serious: Yes (Hospitalization)
  Sender: FDA-Public Use
  Company Number: US-ABBOTT-13P-163-1106644-00

PATIENT
  Age: 37 Year
  Sex: Female
  Weight: 44.04 kg

DRUGS (4)
  1. HUMIRA [Suspect]
     Indication: CROHN^S DISEASE
     Dosage: 1ST LOADING DOSE
     Route: 058
     Dates: start: 20130531, end: 20130531
  2. AMITRIPTYLINE [Concomitant]
     Indication: DEPRESSION
  3. MULTIVITAMINS [Concomitant]
     Indication: VITAMIN SUPPLEMENTATION
  4. CLARITAN [Concomitant]
     Indication: HYPERSENSITIVITY

REACTIONS (10)
  - Road traffic accident [Recovered/Resolved]
  - Wrist fracture [Recovering/Resolving]
  - Contusion [Recovering/Resolving]
  - Neck pain [Recovering/Resolving]
  - Haematoma [Not Recovered/Not Resolved]
  - Procedural pain [Recovering/Resolving]
  - Contusion [Recovering/Resolving]
  - Solar lentigo [Not Recovered/Not Resolved]
  - Haematoma [Not Recovered/Not Resolved]
  - Localised infection [Not Recovered/Not Resolved]
